FAERS Safety Report 11587713 (Version 2)
Quarter: 2015Q4

REPORT INFORMATION
  Report Type: Spontaneous
  Country: US (occurrence: US)
  Receive Date: 20151001
  Receipt Date: 20151007
  Transmission Date: 20160304
  Serious: No
  Sender: FDA-Public Use
  Company Number: US-GLAXOSMITHKLINE-US2015137395

PATIENT
  Age: 69 Year
  Sex: Male

DRUGS (1)
  1. NICORETTE [Suspect]
     Active Substance: NICOTINE
     Indication: SMOKING CESSATION THERAPY
     Dosage: 2 MG, UNK
     Dates: start: 201508

REACTIONS (3)
  - Accidental exposure to product [Unknown]
  - Incorrect dosage administered [Unknown]
  - Gastric disorder [Not Recovered/Not Resolved]
